FAERS Safety Report 20643874 (Version 1)
Quarter: 2022Q1

REPORT INFORMATION
  Report Type: Spontaneous
  Country: US (occurrence: US)
  Receive Date: 20220328
  Receipt Date: 20220328
  Transmission Date: 20220423
  Serious: Yes (Life-Threatening, Hospitalization, Other)
  Sender: FDA-Public Use
  Company Number: US-LUPIN PHARMACEUTICALS INC.-2022-04156

PATIENT
  Sex: Female

DRUGS (10)
  1. CEFTRIAXONE [Suspect]
     Active Substance: CEFTRIAXONE
     Indication: Cellulitis
     Dosage: 1 GRAM
     Route: 042
  2. CEFTRIAXONE [Suspect]
     Active Substance: CEFTRIAXONE
     Indication: Lymphoedema
  3. VANCOMYCIN [Suspect]
     Active Substance: VANCOMYCIN
     Indication: Cellulitis
     Dosage: UNK
     Route: 065
  4. VANCOMYCIN [Suspect]
     Active Substance: VANCOMYCIN
     Indication: Lymphoedema
  5. METRONIDAZOLE [Suspect]
     Active Substance: METRONIDAZOLE
     Indication: Cellulitis
     Dosage: UNK
     Route: 042
  6. METRONIDAZOLE [Suspect]
     Active Substance: METRONIDAZOLE
     Indication: Lymphoedema
  7. CLINDAMYCIN [Suspect]
     Active Substance: CLINDAMYCIN
     Indication: Cellulitis
     Dosage: UNK, ONE DOSE
     Route: 042
  8. CLINDAMYCIN [Suspect]
     Active Substance: CLINDAMYCIN
     Indication: Lymphoedema
     Dosage: UNK, SECOND DOSE
     Route: 042
  9. CEFEPIME [Suspect]
     Active Substance: CEFEPIME HYDROCHLORIDE
     Indication: Cellulitis
     Dosage: UNK
     Route: 065
  10. CEFEPIME [Suspect]
     Active Substance: CEFEPIME HYDROCHLORIDE
     Indication: Lymphoedema

REACTIONS (16)
  - Acute generalised exanthematous pustulosis [Recovering/Resolving]
  - Oedema [Unknown]
  - Neutrophilia [Unknown]
  - Tachycardia [Unknown]
  - Mental status changes [Recovered/Resolved]
  - Urine output decreased [Unknown]
  - Metabolic acidosis [Unknown]
  - Leukocytosis [Unknown]
  - Acute kidney injury [Unknown]
  - Liver injury [Recovering/Resolving]
  - Streptococcal infection [Unknown]
  - Multiple organ dysfunction syndrome [Unknown]
  - Haemodynamic instability [Unknown]
  - Renal impairment [Unknown]
  - Acinetobacter infection [Unknown]
  - Condition aggravated [Unknown]
